FAERS Safety Report 13068898 (Version 4)
Quarter: 2017Q1

REPORT INFORMATION
  Report Type: Report from Study
  Country: US (occurrence: US)
  Receive Date: 20161228
  Receipt Date: 20170120
  Transmission Date: 20170428
  Serious: Yes (Hospitalization)
  Sender: FDA-Public Use
  Company Number: US-ACTELION-A-NJ2016-144483

PATIENT
  Age: 63 Year
  Sex: Female
  Weight: 102.49 kg

DRUGS (7)
  1. UPTRAVI [Suspect]
     Active Substance: SELEXIPAG
     Dosage: 200 MCG, BID
     Route: 048
     Dates: start: 20160928
  2. UPTRAVI [Suspect]
     Active Substance: SELEXIPAG
     Dosage: 800 MCG, BID
     Route: 048
  3. UPTRAVI [Suspect]
     Active Substance: SELEXIPAG
     Indication: PULMONARY ARTERIAL HYPERTENSION
     Dosage: 400 MCG, BID
     Route: 048
     Dates: start: 20161217
  4. SILDENAFIL. [Concomitant]
     Active Substance: SILDENAFIL
  5. LETAIRIS [Suspect]
     Active Substance: AMBRISENTAN
     Indication: PRODUCT USED FOR UNKNOWN INDICATION
     Dosage: 10 MG, QD
     Route: 065
     Dates: start: 20160311
  6. XARELTO [Concomitant]
     Active Substance: RIVAROXABAN
  7. UPTRAVI [Suspect]
     Active Substance: SELEXIPAG
     Dosage: 600 MCG, BID
     Route: 048

REACTIONS (19)
  - Epistaxis [Unknown]
  - Disease complication [Unknown]
  - Myalgia [Unknown]
  - Headache [Unknown]
  - Tooth extraction [Unknown]
  - Fluid retention [Unknown]
  - PCO2 increased [Unknown]
  - Pain in jaw [Unknown]
  - Nasal congestion [Unknown]
  - Wrong technique in product usage process [Unknown]
  - Fatigue [Unknown]
  - Aspiration [Unknown]
  - Tracheostomy [Unknown]
  - Nausea [Unknown]
  - Cardio-respiratory arrest [Unknown]
  - Dyspnoea [Unknown]
  - Muscle spasms [Unknown]
  - Endotracheal intubation [Unknown]
  - Dyspnoea exertional [Unknown]

NARRATIVE: CASE EVENT DATE: 20161217
